FAERS Safety Report 8841651 (Version 1)
Quarter: 2012Q4

REPORT INFORMATION
  Report Type: 
  Country: GB (occurrence: GB)
  Receive Date: 20121015
  Receipt Date: 20121015
  Transmission Date: 20130627
  Serious: Yes (Other)
  Sender: FDA-Public Use
  Company Number: GB-ASTRAZENECA-2012SE76785

PATIENT
  Sex: Female

DRUGS (4)
  1. ATENOLOL [Suspect]
     Indication: BLOOD PRESSURE ABNORMAL
     Route: 048
  2. BUMETANIDE [Concomitant]
  3. LORAZEPAM [Concomitant]
  4. OMEPRAZOLE [Concomitant]

REACTIONS (11)
  - Mouth ulceration [Recovered/Resolved]
  - Malaise [Recovered/Resolved]
  - Insomnia [Recovered/Resolved]
  - Hallucination [Recovered/Resolved]
  - Abnormal dreams [Recovered/Resolved]
  - Nightmare [Recovered/Resolved]
  - Middle insomnia [Recovered/Resolved]
  - Rash macular [Recovered/Resolved]
  - Abdominal pain upper [Recovered/Resolved]
  - Vomiting [Recovered/Resolved]
  - Nausea [Recovered/Resolved]
